FAERS Safety Report 8335518-2 (Version None)
Quarter: 2012Q2

REPORT INFORMATION
  Report Type: 
  Country: None (occurrence: None)
  Receive Date: 20120503
  Receipt Date: 20120420
  Transmission Date: 20120825
  Serious: Yes (Death)
  Sender: FDA-Public Use
  Company Number: FR-BAXTER-2012BAX004517

PATIENT

DRUGS (5)
  1. DACARBAZINE [Suspect]
     Indication: SARCOMA METASTATIC
  2. IFOSFAMIDE [Suspect]
     Indication: SARCOMA METASTATIC
     Dosage: 2.5 G/M2/D
     Route: 041
  3. UROMITEXAN 5 G/50 ML, SOLUTION INJECTABLE POUR PERFUSION EN FLACON [Concomitant]
     Indication: SARCOMA METASTATIC
     Dosage: 2.5 G/M2/D
  4. NEUPOGEN [Concomitant]
     Indication: PROPHYLAXIS
  5. DOXORUBICIN HCL [Suspect]
     Indication: SARCOMA METASTATIC

REACTIONS (1)
  - SEPSIS [None]
